FAERS Safety Report 10791001 (Version 1)
Quarter: 2015Q1

REPORT INFORMATION
  Report Type: Spontaneous
  Country: US (occurrence: US)
  Receive Date: 20150212
  Receipt Date: 20150212
  Transmission Date: 20150721
  Serious: No
  Sender: FDA-Public Use
  Company Number: US-GLAXOSMITHKLINE-US2014039500

PATIENT
  Sex: Female

DRUGS (13)
  1. PROMACTA [Suspect]
     Active Substance: ELTROMBOPAG OLAMINE
     Indication: AUTOIMMUNE HAEMOLYTIC ANAEMIA
     Dosage: 50 MG, QD
     Route: 048
     Dates: start: 20141126
  2. PREDNISONE. [Suspect]
     Active Substance: PREDNISONE
     Route: 048
  3. NOVOLIN-N [Concomitant]
  4. PREDNISONE. [Suspect]
     Active Substance: PREDNISONE
     Route: 048
  5. ATIVAN [Concomitant]
     Active Substance: LORAZEPAM
  6. ESTRADIOL. [Concomitant]
     Active Substance: ESTRADIOL
  7. LISINOPRIL. [Concomitant]
     Active Substance: LISINOPRIL
  8. HYDROCHLOROTHIAZIDE. [Concomitant]
     Active Substance: HYDROCHLOROTHIAZIDE
  9. LEVOXYL [Concomitant]
     Active Substance: LEVOTHYROXINE SODIUM
  10. PROTONIX [Concomitant]
     Active Substance: PANTOPRAZOLE SODIUM
  11. FOLIC ACID. [Concomitant]
     Active Substance: FOLIC ACID
  12. SUCRALFATE. [Concomitant]
     Active Substance: SUCRALFATE
  13. MISOPROSTOL. [Concomitant]
     Active Substance: MISOPROSTOL

REACTIONS (2)
  - Headache [Not Recovered/Not Resolved]
  - Blood glucose increased [Not Recovered/Not Resolved]

NARRATIVE: CASE EVENT DATE: 201412
